FAERS Safety Report 9704841 (Version 1)
Quarter: 2013Q4

REPORT INFORMATION
  Report Type: Spontaneous
  Country: AR (occurrence: AR)
  Receive Date: 20131122
  Receipt Date: 20131122
  Transmission Date: 20140711
  Serious: Yes (Hospitalization)
  Sender: FDA-Public Use
  Company Number: AR-BRISTOL-MYERS SQUIBB COMPANY-19805316

PATIENT
  Age: 63 Year
  Sex: Female
  Weight: 100 kg

DRUGS (1)
  1. BYETTA PEN DISPOSABLE [Suspect]
     Indication: TYPE 2 DIABETES MELLITUS
     Dosage: INTER ON NOV13,INITIAL DOSE 5MCG THEN INCREASED TO 10MCG
     Route: 058
     Dates: start: 2011

REACTIONS (2)
  - Acute myocardial infarction [Recovered/Resolved]
  - Weight decreased [Recovered/Resolved]
